FAERS Safety Report 14035606 (Version 13)
Quarter: 2019Q3

REPORT INFORMATION
  Report Type: Spontaneous
  Country: US (occurrence: US)
  Receive Date: 20171003
  Receipt Date: 20190731
  Transmission Date: 20191004
  Serious: Yes (Hospitalization, Other)
  Sender: FDA-Public Use
  Company Number: US-ACTELION-A-US2017-160279

PATIENT
  Sex: Female
  Weight: 92.97 kg

DRUGS (5)
  1. AMLODIPINE [Concomitant]
     Active Substance: AMLODIPINE BESYLATE
  2. VELETRI [Suspect]
     Active Substance: EPOPROSTENOL
     Dosage: 33.5 UNK
     Route: 042
  3. ADCIRCA [Concomitant]
     Active Substance: TADALAFIL
  4. VELETRI [Suspect]
     Active Substance: EPOPROSTENOL
     Dosage: 25 NG/KG, PER MIN
     Route: 042
  5. VELETRI [Suspect]
     Active Substance: EPOPROSTENOL
     Indication: PULMONARY ARTERIAL HYPERTENSION
     Dosage: 30 NG/KG, PER MIN
     Route: 042

REACTIONS (13)
  - Lethargy [Unknown]
  - Dyspnoea exertional [Not Recovered/Not Resolved]
  - Oxygen consumption increased [Unknown]
  - Pneumonia [Unknown]
  - Confusional state [Unknown]
  - Fall [Unknown]
  - Loss of consciousness [Unknown]
  - Hip fracture [Unknown]
  - Hip surgery [Unknown]
  - Product administration error [Unknown]
  - Diarrhoea [Not Recovered/Not Resolved]
  - Hip arthroplasty [Unknown]
  - Malaise [Unknown]
